FAERS Safety Report 18219389 (Version 1)
Quarter: 2020Q3

REPORT INFORMATION
  Report Type: Spontaneous
  Country: US (occurrence: US)
  Receive Date: 20200901
  Receipt Date: 20200901
  Transmission Date: 20201103
  Serious: Yes (Hospitalization, Other)
  Sender: FDA-Public Use
  Company Number: US-PURDUE-USA-2020-0164026

PATIENT

DRUGS (2)
  1. HYDROMORPHONE HCL (SIMILAR TO 19?892) [Suspect]
     Active Substance: HYDROMORPHONE HYDROCHLORIDE
     Indication: PRODUCT USED FOR UNKNOWN INDICATION
     Dosage: UNK
     Route: 048
  2. OXYCONTIN [Suspect]
     Active Substance: OXYCODONE HYDROCHLORIDE
     Indication: PAIN
     Dosage: 80 MG, 3 TIMES A DAY
     Route: 048

REACTIONS (10)
  - Anger [Unknown]
  - Scar [Unknown]
  - Drug withdrawal syndrome [Unknown]
  - Drug dependence [Unknown]
  - Panic attack [Unknown]
  - Illness [Unknown]
  - Liver transplant [Unknown]
  - Liver injury [Unknown]
  - Drug abuse [Unknown]
  - Scratch [Unknown]

NARRATIVE: CASE EVENT DATE: 2004
